FAERS Safety Report 12119821 (Version 2)
Quarter: 2016Q1

REPORT INFORMATION
  Report Type: Report from Study
  Country: GB (occurrence: GB)
  Receive Date: 20160226
  Receipt Date: 20160329
  Transmission Date: 20160526
  Serious: Yes (Hospitalization, Disabling)
  Sender: FDA-Public Use
  Company Number: GB-CELGENE-GBR-2015111533

PATIENT
  Age: 64 Year
  Sex: Male

DRUGS (4)
  1. DEXAMETHASONE. [Suspect]
     Active Substance: DEXAMETHASONE
     Indication: PLASMA CELL MYELOMA
     Route: 048
     Dates: start: 20151029, end: 20151210
  2. THALIDOMIDE [Suspect]
     Active Substance: THALIDOMIDE
     Route: 048
     Dates: start: 20151029, end: 20151214
  3. CYCLOPHOSPHAMIDE. [Suspect]
     Active Substance: CYCLOPHOSPHAMIDE
     Indication: PLASMA CELL MYELOMA
     Route: 048
     Dates: start: 20151029, end: 20151210
  4. THALIDOMIDE [Suspect]
     Active Substance: THALIDOMIDE
     Indication: PLASMA CELL MYELOMA
     Route: 048
     Dates: start: 20151029

REACTIONS (3)
  - Lower respiratory tract infection [Recovered/Resolved]
  - Peripheral sensory neuropathy [Recovering/Resolving]
  - Peroneal nerve palsy [Recovering/Resolving]

NARRATIVE: CASE EVENT DATE: 20151103
